FAERS Safety Report 24704797 (Version 1)
Quarter: 2024Q4

REPORT INFORMATION
  Report Type: Spontaneous
  Country: NL (occurrence: NL)
  Receive Date: 20241206
  Receipt Date: 20241206
  Transmission Date: 20250115
  Serious: Yes (Other)
  Sender: SAMSUNG BIOEPIS
  Company Number: None

PATIENT
  Age: 59 Year
  Sex: Female
  Weight: 88 kg

DRUGS (2)
  1. IMRALDI [Suspect]
     Active Substance: ADALIMUMAB
     Indication: Psoriatic arthropathy
     Dosage: IMRALDI 40 INJVLST 50MG/ML PEN 0,8ML, 1X EVERY 2 WEEKS
     Dates: start: 20240716, end: 20240810
  2. IMRALDI [Suspect]
     Active Substance: ADALIMUMAB
     Indication: Sarcoidosis

REACTIONS (2)
  - Pneumonia [Recovering/Resolving]
  - Off label use [Unknown]
